FAERS Safety Report 5179761-2 (Version None)
Quarter: 2006Q4

REPORT INFORMATION
  Report Type: 
  Country: None (occurrence: None)
  Receive Date: 20061212
  Receipt Date: 20061129
  Transmission Date: 20070319
  Serious: Yes (Disabling)
  Sender: FDA-Public Use
  Company Number: 2006141334

PATIENT
  Age: 58 Year
  Sex: Male
  Weight: 70 kg

DRUGS (8)
  1. ZYVOX [Suspect]
     Indication: SEPSIS
     Dosage: 1200 MG (600 MG, 2 IN 1 D), INTRAVENOUS
     Route: 042
     Dates: start: 20061107, end: 20061112
  2. MICAFUNGIN (MICAFUNGIN) [Suspect]
     Indication: FUNGAL INFECTION
     Dosage: 150 MG (150 MG, 1 IN 1 D), INTRAVENOUS
     Route: 042
     Dates: start: 20061107, end: 20061116
  3. AMBISOME [Concomitant]
  4. PAZUCROSS (PAZUFLOXACIN) [Concomitant]
  5. CLINDAMYCIN HCL [Concomitant]
  6. NEUTROGIN (LENOGRASTIM) [Concomitant]
  7. MEROPEN (MEROPENEM) [Concomitant]
  8. BLOOD AND RELATED PRODUCTS (BLOOD AND RELATED PRODUCTS) [Concomitant]

REACTIONS (5)
  - DEAFNESS NEUROSENSORY [None]
  - DEAFNESS UNILATERAL [None]
  - PYREXIA [None]
  - STRESS [None]
  - THERAPY NON-RESPONDER [None]
